FAERS Safety Report 24094433 (Version 5)
Quarter: 2024Q4

REPORT INFORMATION
  Report Type: Spontaneous
  Country: US (occurrence: US)
  Receive Date: 20240716
  Receipt Date: 20241023
  Transmission Date: 20250115
  Serious: Yes (Hospitalization, Other)
  Sender: SANOFI AVENTIS
  Company Number: US-SA-SAC20240712000343

PATIENT
  Age: 32 Year
  Sex: Female
  Weight: 61.678 kg

DRUGS (2)
  1. LUMIZYME [Suspect]
     Active Substance: ALGLUCOSIDASE ALFA
     Indication: Glycogen storage disease type II
     Dosage: 1250 MG, QOW
     Route: 042
     Dates: start: 202406
  2. LUMIZYME [Suspect]
     Active Substance: ALGLUCOSIDASE ALFA
     Dosage: 1252 MG, QOW
     Route: 042
     Dates: start: 2024, end: 2024

REACTIONS (6)
  - Cholecystitis [Unknown]
  - Cholelithiasis [Unknown]
  - Superficial vein thrombosis [Unknown]
  - Thrombosis [Unknown]
  - Haemorrhage [Unknown]
  - Weight decreased [Unknown]

NARRATIVE: CASE EVENT DATE: 20240101
